FAERS Safety Report 9461907 (Version 1)
Quarter: 2013Q3

REPORT INFORMATION
  Report Type: Spontaneous
  Country: FR (occurrence: FR)
  Receive Date: 20130816
  Receipt Date: 20130816
  Transmission Date: 20140515
  Serious: Yes (Hospitalization)
  Sender: FDA-Public Use
  Company Number: FR-UCBSA-094824

PATIENT
  Age: 81 Year
  Sex: Female

DRUGS (3)
  1. KEPPRA [Suspect]
     Indication: MENINGIOMA
     Route: 048
     Dates: start: 201303, end: 20130719
  2. LEVOTHYROX [Concomitant]
     Dosage: 75
  3. INEXIUM [Concomitant]
     Dosage: 20

REACTIONS (1)
  - Encephalopathy [Recovered/Resolved]
